FAERS Safety Report 8579020-1 (Version None)
Quarter: 2012Q3

REPORT INFORMATION
  Report Type: 
  Country: None (occurrence: None)
  Receive Date: 20120808
  Receipt Date: 20120730
  Transmission Date: 20120928
  Serious: Yes (Hospitalization)
  Sender: FDA-Public Use
  Company Number: US-JNJFOC-20120705907

PATIENT
  Sex: Male
  Weight: 30.84 kg

DRUGS (4)
  1. METHYLPHENIDATE HCL [Suspect]
     Indication: ATTENTION DEFICIT/HYPERACTIVITY DISORDER
     Route: 048
     Dates: start: 20110701, end: 20120608
  2. CONCERTA [Suspect]
     Indication: ATTENTION DEFICIT/HYPERACTIVITY DISORDER
     Route: 065
     Dates: start: 20060101, end: 20110701
  3. SINGULAIR [Concomitant]
     Indication: ASTHMA
     Route: 065
  4. METHYLPHENIDATE HCL [Suspect]
     Route: 048
     Dates: start: 20080101

REACTIONS (1)
  - COLONIC POLYP [None]
